FAERS Safety Report 20329080 (Version 1)
Quarter: 2022Q1

REPORT INFORMATION
  Report Type: Spontaneous
  Country: US (occurrence: US)
  Receive Date: 20220112
  Receipt Date: 20220112
  Transmission Date: 20220424
  Serious: No
  Sender: FDA-Public Use
  Company Number: US-INTRA-CELLULAR THERAPIES, INC.-2021ICT00429

PATIENT
  Age: 22 Year
  Sex: Male
  Weight: 64.853 kg

DRUGS (2)
  1. CAPLYTA [Suspect]
     Active Substance: LUMATEPERONE
     Indication: Schizophrenia
     Dosage: 42 MG, EVERY 48 HOURS
     Route: 048
     Dates: start: 20210910, end: 20210912
  2. CAPLYTA [Suspect]
     Active Substance: LUMATEPERONE
     Indication: Schizoaffective disorder

REACTIONS (10)
  - Hypoaesthesia [Recovered/Resolved]
  - Feeling cold [Recovered/Resolved]
  - Bone pain [Recovered/Resolved]
  - Spinal pain [Recovered/Resolved]
  - Chills [Recovered/Resolved]
  - Headache [Recovered/Resolved]
  - Product dose omission issue [Recovered/Resolved]
  - Musculoskeletal stiffness [Recovered/Resolved]
  - Skin warm [Recovered/Resolved]
  - Tremor [Recovered/Resolved]

NARRATIVE: CASE EVENT DATE: 20210910
